FAERS Safety Report 8197513-6 (Version None)
Quarter: 2012Q1

REPORT INFORMATION
  Report Type: 
  Country: None (occurrence: None)
  Receive Date: 20120309
  Receipt Date: 20120223
  Transmission Date: 20120608
  Serious: Yes (Disabling, Other)
  Sender: FDA-Public Use
  Company Number: US-ROCHE-1043240

PATIENT
  Sex: Female
  Weight: 90.8 kg

DRUGS (11)
  1. LIPITOR [Suspect]
     Indication: BLOOD CHOLESTEROL INCREASED
     Route: 048
  2. KETOROLAC TROMETHAMINE [Suspect]
     Indication: OEDEMA
     Route: 047
  3. SIMVASTATIN [Suspect]
     Indication: BLOOD CHOLESTEROL INCREASED
  4. TOBRAMYCIN [Suspect]
     Indication: OEDEMA
     Route: 047
  5. ACETAZOLAMIDE [Suspect]
     Indication: OEDEMA
  6. CELEBREX [Suspect]
     Indication: POLYARTHRITIS
  7. LEVOXYL [Concomitant]
     Indication: HORMONE REPLACEMENT THERAPY
  8. NAPROXEN [Suspect]
     Indication: POLYARTHRITIS
  9. PRED FORTE [Suspect]
     Indication: OEDEMA
     Route: 047
  10. PROPYLENE GLYCOL [Suspect]
     Indication: OEDEMA
     Route: 047
  11. THIAZIDE [Concomitant]
     Indication: HYPERTENSION

REACTIONS (7)
  - EYE OEDEMA [None]
  - EYE DISORDER [None]
  - CATARACT OPERATION [None]
  - VISUAL IMPAIRMENT [None]
  - VISION BLURRED [None]
  - INTRAOCULAR PRESSURE INCREASED [None]
  - DRUG INEFFECTIVE [None]
